FAERS Safety Report 23873789 (Version 1)
Quarter: 2024Q2

REPORT INFORMATION
  Report Type: Spontaneous
  Country: US (occurrence: None)
  Receive Date: 20240517
  Receipt Date: 20240517
  Transmission Date: 20240716
  Serious: Yes (Hospitalization)
  Sender: FDA-Public Use
  Company Number: None

PATIENT
  Sex: Female

DRUGS (2)
  1. OPSUMIT [Suspect]
     Active Substance: MACITENTAN
     Indication: Pulmonary hypertension
     Dosage: 10MG DAILY BY MOUTH?
     Route: 048
     Dates: start: 202010
  2. ADEMPAS [Concomitant]
     Active Substance: RIOCIGUAT

REACTIONS (2)
  - Hernia repair [None]
  - Infection [None]
